FAERS Safety Report 25803698 (Version 2)
Quarter: 2025Q3

REPORT INFORMATION
  Report Type: Spontaneous
  Country: EU (occurrence: EU)
  Receive Date: 20250915
  Receipt Date: 20250929
  Transmission Date: 20251021
  Serious: Yes (Hospitalization, Other)
  Sender: ASCEND THERAPEUTICS US, LLC
  Company Number: EU-Ascend Therapeutics US, LLC-2184536

PATIENT
  Age: 51 Year
  Sex: Female
  Weight: 83 kg

DRUGS (7)
  1. ESTROGEL [Suspect]
     Active Substance: ESTRADIOL
     Indication: Hormone replacement therapy
     Dates: start: 2024, end: 202509
  2. ESTROGEL [Suspect]
     Active Substance: ESTRADIOL
     Indication: Hot flush
  3. PROGESTERONE [Suspect]
     Active Substance: PROGESTERONE
     Dates: end: 202509
  4. TOFACITINIB [Concomitant]
     Active Substance: TOFACITINIB
  5. BISOPROLOL FUMARATE [Concomitant]
     Active Substance: BISOPROLOL FUMARATE
  6. ATORVASTATIN CALCIUM [Concomitant]
     Active Substance: ATORVASTATIN CALCIUM
  7. ESTRADIOL [Suspect]
     Active Substance: ESTRADIOL

REACTIONS (3)
  - Atrial fibrillation [Unknown]
  - Type 2 diabetes mellitus [Unknown]
  - Product prescribing error [Unknown]

NARRATIVE: CASE EVENT DATE: 20250101
